FAERS Safety Report 6920166-9 (Version None)
Quarter: 2010Q3

REPORT INFORMATION
  Report Type: 
  Country: None (occurrence: None)
  Receive Date: 20100809
  Receipt Date: 20100803
  Transmission Date: 20110219
  Serious: Yes (Hospitalization)
  Sender: FDA-Public Use
  Company Number: 2010SP037971

PATIENT
  Age: 79 Year
  Sex: Male

DRUGS (11)
  1. MIRTAZAPINE [Suspect]
     Indication: PRODUCT USED FOR UNKNOWN INDICATION
     Dosage: 15 MG; BID; PO
     Route: 048
  2. NEXIUM [Suspect]
     Indication: PRODUCT USED FOR UNKNOWN INDICATION
     Dosage: 20 MG; QD; PO
     Route: 048
  3. OXAZEPAM [Suspect]
     Indication: PRODUCT USED FOR UNKNOWN INDICATION
     Dosage: 50 MG; QD; PO
     Route: 048
  4. DILTIAZEM (DILTIAZEM HYDROCHLORIDE /00489702/) [Suspect]
     Indication: PRODUCT USED FOR UNKNOWN INDICATION
     Dosage: 300 MG; QD
     Dates: end: 20090401
  5. METFORMIN HCL [Suspect]
     Indication: PRODUCT USED FOR UNKNOWN INDICATION
     Dosage: PO
     Route: 048
     Dates: end: 20090401
  6. MEMANTINE HCL [Concomitant]
  7. EQUANIL [Concomitant]
  8. ISOPTIN [Concomitant]
  9. XANAX [Concomitant]
  10. DIFFU K [Concomitant]
  11. PYOSTACINE [Concomitant]

REACTIONS (8)
  - DERMATITIS EXFOLIATIVE [None]
  - EPSTEIN-BARR VIRUS INFECTION [None]
  - EYELID OEDEMA [None]
  - RASH PRURITIC [None]
  - SKIN EXFOLIATION [None]
  - STAPHYLOCOCCAL SKIN INFECTION [None]
  - THROMBOTIC THROMBOCYTOPENIC PURPURA [None]
  - TOXIC SKIN ERUPTION [None]
